FAERS Safety Report 11716445 (Version 2)
Quarter: 2015Q4

REPORT INFORMATION
  Report Type: Spontaneous
  Country: US (occurrence: US)
  Receive Date: 20151109
  Receipt Date: 20151110
  Transmission Date: 20160304
  Serious: Yes (Other)
  Sender: FDA-Public Use
  Company Number: US-PFIZER INC-2015378270

PATIENT
  Age: 53 Year
  Sex: Female
  Weight: 49 kg

DRUGS (2)
  1. FIBERCON [Suspect]
     Active Substance: CALCIUM POLYCARBOPHIL
     Indication: BOWEL MOVEMENT IRREGULARITY
     Dosage: 1 DF, 2X/DAY (ONE TABLET IN THE MORNING AND ONE IN THE EVENING)
     Dates: start: 2015
  2. FIBERCON [Suspect]
     Active Substance: CALCIUM POLYCARBOPHIL
     Dosage: ONE TABLET EVERY NIGHT
     Dates: start: 2015

REACTIONS (3)
  - Intentional product use issue [Unknown]
  - Rectal haemorrhage [Not Recovered/Not Resolved]
  - Haemorrhoidal haemorrhage [Not Recovered/Not Resolved]

NARRATIVE: CASE EVENT DATE: 2015
